FAERS Safety Report 8615173-4 (Version None)
Quarter: 2012Q3

REPORT INFORMATION
  Report Type: 
  Country: None (occurrence: None)
  Receive Date: 20120823
  Receipt Date: 20120813
  Transmission Date: 20120928
  Serious: Yes (Other)
  Sender: FDA-Public Use
  Company Number: US-PFIZER INC-2012033344

PATIENT
  Age: 26 Year
  Sex: Female
  Weight: 128 kg

DRUGS (15)
  1. SYMBICORT [Suspect]
     Indication: ASTHMA
     Dosage: 80 MG, 2X/DAY
     Route: 065
  2. MULTI-VITAMINS [Concomitant]
     Indication: VITAMIN SUPPLEMENTATION
     Dosage: UNK
     Route: 065
  3. IRON [Concomitant]
     Indication: PROPHYLAXIS
     Route: 065
  4. LYRICA [Suspect]
     Indication: PRODUCT USED FOR UNKNOWN INDICATION
     Route: 065
  5. TOPAMAX [Suspect]
     Indication: MIGRAINE
     Dosage: 100 MG, 2X/DAY
     Route: 048
     Dates: start: 20060101
  6. COMPAZINE [Suspect]
     Indication: NAUSEA
  7. TESSALON [Suspect]
     Indication: COUGH
     Route: 048
  8. IBUPROFEN [Suspect]
     Indication: HEADACHE
     Route: 065
     Dates: start: 20080609
  9. ALBUTEROL [Suspect]
     Indication: ASTHMA
     Dosage: 3 ML, UNK
     Route: 065
  10. TYLENOL W/ CODEINE [Suspect]
     Indication: HEADACHE
     Route: 048
  11. AXOTAL [Suspect]
     Indication: PRODUCT USED FOR UNKNOWN INDICATION
     Route: 065
  12. EXCEDRIN (MIGRAINE) [Suspect]
     Indication: HEADACHE
     Route: 065
  13. AMBIEN [Suspect]
     Indication: PRODUCT USED FOR UNKNOWN INDICATION
     Dosage: 10 MG, UNK
     Route: 065
  14. COMPAZINE [Suspect]
     Indication: VOMITING
     Dosage: 10 MG, UNK
     Route: 065
  15. ZOFRAN [Suspect]
     Indication: PRODUCT USED FOR UNKNOWN INDICATION
     Route: 065

REACTIONS (3)
  - DEPRESSION [None]
  - WEIGHT DECREASED [None]
  - STRESS [None]
